FAERS Safety Report 4853211-5 (Version None)
Quarter: 2005Q4

REPORT INFORMATION
  Report Type: 
  Country: None (occurrence: None)
  Receive Date: 20051213
  Receipt Date: 20051213
  Transmission Date: 20060501
  Serious: Yes (Hospitalization)
  Sender: FDA-Public Use
  Company Number: None

PATIENT
  Age: 59 Year
  Sex: Male
  Weight: 68.0396 kg

DRUGS (8)
  1. OXALIPLATIN @ 130 MG/M2 [Suspect]
     Indication: HEPATIC NEOPLASM MALIGNANT
     Dosage: 230 MG IV
     Route: 042
     Dates: start: 20051130
  2. OXALIPLATIN @ 130 MG/M2 [Suspect]
     Indication: METASTASIS
     Dosage: 230 MG IV
     Route: 042
     Dates: start: 20051130
  3. DOCETAXEL @ 50 MG/M2 [Suspect]
     Indication: HEPATIC NEOPLASM MALIGNANT
     Dosage: 88.5 MG IV
     Route: 042
     Dates: start: 20051130
  4. DOCETAXEL @ 50 MG/M2 [Suspect]
     Indication: METASTASIS
     Dosage: 88.5 MG IV
     Route: 042
     Dates: start: 20051130
  5. DOCETAXEL @ 50 MG/M2 [Suspect]
     Indication: HEPATIC NEOPLASM MALIGNANT
     Dosage: 88.5 MG IV
     Route: 042
     Dates: start: 20051207
  6. DOCETAXEL @ 50 MG/M2 [Suspect]
     Indication: METASTASIS
     Dosage: 88.5 MG IV
     Route: 042
     Dates: start: 20051207
  7. LEVOTHYROXINE SODIUM [Concomitant]
  8. HEPSERA [Concomitant]

REACTIONS (4)
  - CHILLS [None]
  - DRUG TOXICITY [None]
  - NEUTROPENIA [None]
  - PYREXIA [None]
